FAERS Safety Report 6773250-7 (Version None)
Quarter: 2010Q2

REPORT INFORMATION
  Report Type: 
  Country: None (occurrence: None)
  Receive Date: 20100616
  Receipt Date: 20100329
  Transmission Date: 20101027
  Serious: No
  Sender: FDA-Public Use
  Company Number: US-ABBOTT-10P-163-0628698-00

PATIENT
  Sex: Male
  Weight: 104.42 kg

DRUGS (3)
  1. TRILIPIX [Suspect]
     Indication: HIGH DENSITY LIPOPROTEIN DECREASED
     Dates: start: 20091201
  2. AMITRIPTYLINE [Concomitant]
     Indication: MIGRAINE
  3. VITAMINS [Concomitant]
     Indication: VITAMIN SUPPLEMENTATION

REACTIONS (2)
  - ARTHRALGIA [None]
  - BACK PAIN [None]
